FAERS Safety Report 23895267 (Version 1)
Quarter: 2024Q2

REPORT INFORMATION
  Report Type: Spontaneous
  Country: JP (occurrence: JP)
  Receive Date: 20240524
  Receipt Date: 20240524
  Transmission Date: 20240716
  Serious: Yes (Other)
  Sender: FDA-Public Use
  Company Number: JP-AMGEN-JPNSP2024098452

PATIENT
  Age: 75 Year
  Sex: Female

DRUGS (5)
  1. EVENITY [Suspect]
     Active Substance: ROMOSOZUMAB-AQQG
     Indication: Osteoporosis
     Dosage: 210 MILLIGRAM, QMO
     Route: 058
     Dates: start: 20240215, end: 202404
  2. CANDESARTAN [Concomitant]
     Active Substance: CANDESARTAN
  3. MAGNESIUM OXIDE [Concomitant]
     Active Substance: MAGNESIUM OXIDE
  4. FLUNITRAZEPAM [Concomitant]
     Active Substance: FLUNITRAZEPAM
  5. KETOPROFEN [Concomitant]
     Active Substance: KETOPROFEN
     Dosage: TAPE

REACTIONS (1)
  - Angina pectoris [Recovered/Resolved]

NARRATIVE: CASE EVENT DATE: 20240516
